FAERS Safety Report 22655030 (Version 1)
Quarter: 2023Q2

REPORT INFORMATION
  Report Type: Spontaneous
  Country: US (occurrence: None)
  Receive Date: 20230628
  Receipt Date: 20230628
  Transmission Date: 20230721
  Serious: Yes (Hospitalization)
  Sender: FDA-Public Use
  Company Number: None

PATIENT
  Age: 74 Year
  Sex: Female
  Weight: 127 kg

DRUGS (1)
  1. MECLIZINE [Suspect]
     Active Substance: MECLIZINE HYDROCHLORIDE
     Indication: Dizziness
     Dosage: OTHER FREQUENCY : BID PRN DIZZINESS;?
     Route: 048
     Dates: start: 20230622, end: 20230627

REACTIONS (2)
  - Hallucination, visual [None]
  - Dysuria [None]

NARRATIVE: CASE EVENT DATE: 20230627
